FAERS Safety Report 17401875 (Version 1)
Quarter: 2020Q1

REPORT INFORMATION
  Report Type: Spontaneous
  Country: FR (occurrence: FR)
  Receive Date: 20200211
  Receipt Date: 20200211
  Transmission Date: 20200409
  Serious: Yes (Hospitalization)
  Sender: FDA-Public Use
  Company Number: FR-RARE DISEASE THERAPEUTICS, INC.-2080110

PATIENT
  Age: 23 Year
  Sex: Male
  Weight: 82 kg

DRUGS (5)
  1. METHOTREXATE. [Suspect]
     Active Substance: METHOTREXATE
     Route: 037
     Dates: start: 20190720, end: 20190720
  2. VINCRISTINE [Suspect]
     Active Substance: VINCRISTINE
     Route: 041
     Dates: start: 20190719, end: 20190719
  3. CYTARABINE. [Suspect]
     Active Substance: CYTARABINE
     Route: 037
     Dates: start: 20190720, end: 20190720
  4. METHOTREXATE. [Suspect]
     Active Substance: METHOTREXATE
     Route: 041
     Dates: start: 20190719, end: 20190719
  5. PURIXAN [Suspect]
     Active Substance: MERCAPTOPURINE
     Indication: ACUTE LYMPHOCYTIC LEUKAEMIA
     Route: 041
     Dates: start: 20190719, end: 20190719

REACTIONS (2)
  - Generalised tonic-clonic seizure [Recovered/Resolved]
  - Product use issue [None]

NARRATIVE: CASE EVENT DATE: 20190719
